FAERS Safety Report 13187340 (Version 1)
Quarter: 2017Q1

REPORT INFORMATION
  Report Type: Report from Study
  Country: US (occurrence: US)
  Receive Date: 20170206
  Receipt Date: 20170206
  Transmission Date: 20170428
  Serious: No
  Sender: FDA-Public Use
  Company Number: PHEH2017US003265

PATIENT

DRUGS (1)
  1. ILARIS [Suspect]
     Active Substance: CANAKINUMAB
     Dosage: 66 MG, EVERY 28 DAYS
     Route: 058

REACTIONS (1)
  - Musculoskeletal stiffness [Unknown]
